FAERS Safety Report 7383451-5 (Version None)
Quarter: 2011Q1

REPORT INFORMATION
  Report Type: 
  Country: None (occurrence: None)
  Receive Date: 20110330
  Receipt Date: 20110321
  Transmission Date: 20110831
  Serious: Yes (Other)
  Sender: FDA-Public Use
  Company Number: GB-JNJFOC-20110301334

PATIENT
  Sex: Female
  Weight: 89 kg

DRUGS (3)
  1. SIMVASTATIN [Concomitant]
     Indication: PRODUCT USED FOR UNKNOWN INDICATION
     Route: 065
  2. RISPERDAL CONSTA [Suspect]
     Indication: SCHIZOPHRENIA
     Route: 030
  3. LANTUS OPTISET [Concomitant]
     Indication: DIABETES MELLITUS
     Route: 065

REACTIONS (5)
  - PSORIASIS [None]
  - INJECTION SITE PAIN [None]
  - INJECTION SITE MASS [None]
  - INJECTION SITE SCAR [None]
  - INJECTION SITE NODULE [None]
